FAERS Safety Report 7080777-X (Version None)
Quarter: 2010Q4

REPORT INFORMATION
  Report Type: 
  Country: None (occurrence: None)
  Receive Date: 20101103
  Receipt Date: 20101022
  Transmission Date: 20110411
  Serious: Yes (Hospitalization)
  Sender: FDA-Public Use
  Company Number: DK-SANOFI-AVENTIS-2010SA064580

PATIENT
  Age: 68 Year
  Sex: Female
  Weight: 70 kg

DRUGS (16)
  1. MULTAQ [Suspect]
     Dosage: 400 MILLIGRAM(S)
     Route: 048
     Dates: start: 20101015, end: 20101018
  2. SPIRIVA [Concomitant]
     Dosage: 2.5 MICROGRAM(S)
     Route: 055
     Dates: start: 20090729
  3. SPIROCORT [Concomitant]
     Indication: ASTHMA
     Dosage: 200 MICROGRAM(S)/DOSE
     Route: 055
     Dates: start: 20100829
  4. FORMOTEROL FUMARATE [Concomitant]
     Indication: ASTHMA
     Dosage: 4.5 MICROGRAM(S)/DOSE
     Route: 055
     Dates: start: 20090123
  5. LEVOTHYROXINE SODIUM [Concomitant]
     Dosage: 50 MICROGRAM(S)
     Route: 048
     Dates: start: 20090729
  6. PREDNISOLONE [Concomitant]
     Indication: HORMONE THERAPY
     Dosage: 5 MILLIGRAM(S)
     Route: 048
     Dates: start: 20100420
  7. AMLODIPINE [Concomitant]
     Indication: HYPERTENSION
     Dosage: 5 MILLIGRAM(S)
     Route: 048
  8. METOPROLOL SUCCINATE [Concomitant]
     Dosage: 50 MILLIGRAM(S)
     Route: 048
     Dates: start: 20100829
  9. FURIX [Concomitant]
     Indication: DIURETIC THERAPY
     Dosage: 40 MILLIGRAM(S)
     Route: 048
     Dates: start: 20101015
  10. BRICANYL [Concomitant]
     Dosage: 0.5 MG/DOSE: 1 INHALATION MAX 20 TIMES A DAY
     Route: 055
     Dates: start: 20100829
  11. ALENDRONATE SODIUM [Concomitant]
     Dosage: 70 MILLIGRAM(S)
     Route: 048
     Dates: start: 20080515
  12. DIGOXIN ^DAK^ [Concomitant]
     Dosage: 62.5 MICROGRAM(S)
     Route: 048
     Dates: start: 20100921
  13. KALEORID [Concomitant]
     Dosage: 750 MILLIGRAM(S)
     Route: 048
     Dates: start: 20101015
  14. WARFARIN SODIUM [Concomitant]
     Indication: ANTICOAGULANT THERAPY
     Dosage: 2.5 MILLIGRAM(S)
     Route: 048
     Dates: start: 20100921
  15. FOLIMET [Concomitant]
     Dosage: 5 MILLIGRAM(S)
     Route: 048
     Dates: start: 20100829
  16. CALCIUM/VITAMIN D [Concomitant]
     Route: 048
     Dates: start: 20081104

REACTIONS (1)
  - VENTRICULAR TACHYCARDIA [None]
